FAERS Safety Report 4423466-X (Version None)
Quarter: 2004Q3

REPORT INFORMATION
  Report Type: 
  Country: None (occurrence: None)
  Receive Date: 20040713
  Receipt Date: 20040329
  Transmission Date: 20050211
  Serious: No
  Sender: FDA-Public Use
  Company Number: PHEH2004US03627

PATIENT
  Age: 7 Year
  Sex: Female

DRUGS (3)
  1. ELIDEL [Suspect]
     Indication: SKIN DISORDER
     Dosage: BID,TOPICAL
     Route: 061
     Dates: start: 20031101, end: 20031201
  2. MULTIVITAMINS (RETINOL, PANTHENOL) [Concomitant]
  3. CARMOL [Concomitant]

REACTIONS (1)
  - IMPAIRED HEALING [None]
